FAERS Safety Report 4996360-3 (Version None)
Quarter: 2006Q2

REPORT INFORMATION
  Report Type: 
  Country: None (occurrence: None)
  Receive Date: 20060509
  Receipt Date: 20060425
  Transmission Date: 20061013
  Serious: Yes (Hospitalization)
  Sender: FDA-Public Use
  Company Number: PL-JNJFOC-20060405826

PATIENT
  Age: 65 Year
  Sex: Male

DRUGS (5)
  1. REOPRO [Suspect]
     Indication: THROMBOSIS
     Dosage: INTRAVENOUS INFUSION
  2. REOPRO [Suspect]
     Indication: ACUTE CORONARY SYNDROME
     Dosage: 19.5 MG CONTINUOUS INTRACORONARY INFUSION.
  3. RANITIDINE [Concomitant]
  4. ACETYLSALICYLIC ACID SRT [Concomitant]
  5. ENOXAPARIN SODIUM [Concomitant]

REACTIONS (4)
  - CARDIOGENIC SHOCK [None]
  - CORONARY ARTERY STENOSIS [None]
  - GASTROINTESTINAL EROSION [None]
  - GASTROINTESTINAL HAEMORRHAGE [None]
